FAERS Safety Report 4349704-X (Version None)
Quarter: 2004Q2

REPORT INFORMATION
  Report Type: 
  Country: None (occurrence: None)
  Receive Date: 20040426
  Receipt Date: 20031022
  Transmission Date: 20050107
  Serious: Yes (Other)
  Sender: FDA-Public Use
  Company Number: 2003032732

PATIENT
  Sex: Female
  Weight: 52 kg

DRUGS (1)
  1. ZITHROMAX [Suspect]
     Indication: PHARYNGOLARYNGEAL PAIN
     Dosage: ORAL
     Route: 048
     Dates: start: 20000108, end: 20030726

REACTIONS (34)
  - ABNORMAL BEHAVIOUR [None]
  - AGITATION [None]
  - ANOREXIA [None]
  - ANXIETY [None]
  - BRONCHITIS [None]
  - CONFUSIONAL STATE [None]
  - CONVULSION [None]
  - COUGH [None]
  - DIZZINESS [None]
  - DYSPEPSIA [None]
  - EAR DISORDER [None]
  - EAR INFECTION [None]
  - HEADACHE [None]
  - HYPERSENSITIVITY [None]
  - HYPOGLYCAEMIA [None]
  - MENTAL DISORDER [None]
  - MOOD ALTERED [None]
  - OBSESSIVE-COMPULSIVE DISORDER [None]
  - PANIC ATTACK [None]
  - PHARYNGOLARYNGEAL PAIN [None]
  - PNEUMONIA [None]
  - PROTEIN URINE [None]
  - PYREXIA [None]
  - RASH [None]
  - RED BLOOD CELL SEDIMENTATION RATE INCREASED [None]
  - RHINITIS ALLERGIC [None]
  - SCHIZOPHRENIA [None]
  - SCREAMING [None]
  - SELF ESTEEM DECREASED [None]
  - SPEECH DISORDER [None]
  - STREPTOCOCCAL INFECTION [None]
  - TONSILLAR HYPERTROPHY [None]
  - TOURETTE'S DISORDER [None]
  - VIRAL INFECTION [None]
